FAERS Safety Report 9887993 (Version 3)
Quarter: 2014Q2

REPORT INFORMATION
  Report Type: Spontaneous
  Country: US (occurrence: US)
  Receive Date: 20140211
  Receipt Date: 20140526
  Transmission Date: 20141212
  Serious: No
  Sender: FDA-Public Use
  Company Number: US-UCBSA-111455

PATIENT
  Age: 78 Year
  Sex: Male
  Weight: 87.99 kg

DRUGS (5)
  1. CIMZIA [Suspect]
     Indication: RHEUMATOID ARTHRITIS
     Dates: start: 201311, end: 201401
  2. PREDNISONE [Concomitant]
     Indication: RHEUMATOID ARTHRITIS
  3. PREDNISONE [Concomitant]
     Indication: RHEUMATOID ARTHRITIS
  4. MELOXICAL [Concomitant]
     Indication: RHEUMATOID ARTHRITIS
  5. MTX [Concomitant]
     Dosage: MONDAY

REACTIONS (1)
  - Nasopharyngitis [Recovered/Resolved]
